FAERS Safety Report 10758845 (Version 1)
Quarter: 2015Q1

REPORT INFORMATION
  Report Type: Spontaneous
  Country: US (occurrence: US)
  Receive Date: 20150203
  Receipt Date: 20150203
  Transmission Date: 20150721
  Serious: No
  Sender: FDA-Public Use
  Company Number: US-BAYER-2015-014077

PATIENT
  Age: 72 Year
  Sex: Female
  Weight: 113.38 kg

DRUGS (4)
  1. TYLENOL [Interacting]
     Active Substance: ACETAMINOPHEN
  2. PROPRANOLOL [Concomitant]
     Active Substance: PROPRANOLOL\PROPRANOLOL HYDROCHLORIDE
  3. SIMVASTATIN. [Concomitant]
     Active Substance: SIMVASTATIN
  4. ALEVE [Suspect]
     Active Substance: NAPROXEN SODIUM
     Indication: ARTHRITIS
     Dosage: 1 DF, QD
     Route: 048

REACTIONS (4)
  - Incorrect drug administration duration [Unknown]
  - Medication error [None]
  - Drug interaction [None]
  - Abdominal pain upper [None]
